FAERS Safety Report 13009652 (Version 1)
Quarter: 2016Q4

REPORT INFORMATION
  Report Type: Spontaneous
  Country: US (occurrence: US)
  Receive Date: 20161208
  Receipt Date: 20161208
  Transmission Date: 20170207
  Serious: No
  Sender: FDA-Public Use
  Company Number: US-BAYER-2016-229667

PATIENT
  Age: 64 Year
  Sex: Female
  Weight: 147 kg

DRUGS (2)
  1. CLARITIN-D 12 HOUR [Suspect]
     Active Substance: LORATADINE\PSEUDOEPHEDRINE SULFATE
     Indication: NASOPHARYNGITIS
     Dosage: 0.5 DF, UNK
     Route: 048
     Dates: start: 20161130
  2. CLARITIN-D 12 HOUR [Suspect]
     Active Substance: LORATADINE\PSEUDOEPHEDRINE SULFATE
     Indication: HYPERSENSITIVITY
     Dosage: 1 DF, UNK
     Route: 048
     Dates: start: 20161129

REACTIONS (6)
  - Feeling jittery [Recovered/Resolved]
  - Product use issue [None]
  - Product use issue [None]
  - Nervousness [None]
  - Thirst [Recovered/Resolved]
  - Product use issue [None]

NARRATIVE: CASE EVENT DATE: 20161129
